FAERS Safety Report 7110341-5 (Version None)
Quarter: 2010Q4

REPORT INFORMATION
  Report Type: 
  Country: None (occurrence: None)
  Receive Date: 20101118
  Receipt Date: 20101110
  Transmission Date: 20110411
  Serious: No
  Sender: FDA-Public Use
  Company Number: US-PFIZER INC-2010145093

PATIENT
  Sex: Female
  Weight: 52.154 kg

DRUGS (3)
  1. LYRICA [Suspect]
     Indication: FIBROMYALGIA
     Dosage: 50 MG, 1X/DAY
     Route: 048
  2. LYRICA [Suspect]
     Dosage: 100 MG, 1X/DAY
  3. LYRICA [Suspect]
     Dosage: 50 MG, 1X/DAY
     Dates: start: 20101108

REACTIONS (3)
  - PARAESTHESIA [None]
  - PRURITUS GENERALISED [None]
  - SKIN DISCOLOURATION [None]
